FAERS Safety Report 5164625-0 (Version None)
Quarter: 2006Q4

REPORT INFORMATION
  Report Type: 
  Country: None (occurrence: None)
  Receive Date: 20061205
  Receipt Date: 20061129
  Transmission Date: 20070319
  Serious: Yes (Other)
  Sender: FDA-Public Use
  Company Number: US-JNJFOC-20061200146

PATIENT
  Sex: Male
  Weight: 78.02 kg

DRUGS (6)
  1. TYLENOL (CAPLET) [Suspect]
  2. TYLENOL (CAPLET) [Suspect]
     Indication: ARTHRALGIA
     Dosage: FOR ^MONTHS^, AS NECESSARY
  3. CLONIDINE [Concomitant]
     Indication: BLOOD PRESSURE
     Dosage: DAILY
  4. DOXAZOSIN MESYLATE [Concomitant]
     Indication: BLOOD PRESSURE
     Dosage: DAILY
  5. HERBS [Concomitant]
     Indication: PHYTOTHERAPY
     Dosage: DAILY
  6. VITAMIN CAP [Concomitant]
     Indication: VITAMIN SUPPLEMENTATION
     Dosage: DAILY

REACTIONS (1)
  - BLOOD PRESSURE INCREASED [None]
